FAERS Safety Report 19717803 (Version 7)
Quarter: 2022Q3

REPORT INFORMATION
  Report Type: Report from Study
  Country: ES (occurrence: ES)
  Receive Date: 20210818
  Receipt Date: 20220708
  Transmission Date: 20221027
  Serious: Yes (Hospitalization, Other)
  Sender: FDA-Public Use
  Company Number: ES-ROCHE-2757043

PATIENT
  Age: 61 Year
  Sex: Female
  Weight: 61 kg

DRUGS (46)
  1. BEVACIZUMAB [Suspect]
     Active Substance: BEVACIZUMAB
     Indication: Non-small cell lung cancer
     Dosage: UNK
     Route: 065
  2. BEVACIZUMAB [Suspect]
     Active Substance: BEVACIZUMAB
     Dosage: 458 MILLIGRAM
     Route: 042
     Dates: start: 20201229
  3. PACLITAXEL [Suspect]
     Active Substance: PACLITAXEL
     Indication: Non-small cell lung cancer metastatic
     Dosage: UNK
     Route: 065
  4. PACLITAXEL [Suspect]
     Active Substance: PACLITAXEL
     Dosage: 325 MILLIGRAM
     Route: 065
     Dates: start: 20201229
  5. CARBOPLATIN [Suspect]
     Active Substance: CARBOPLATIN
     Indication: Non-small cell lung cancer metastatic
     Dosage: UNK
     Route: 065
  6. CARBOPLATIN [Suspect]
     Active Substance: CARBOPLATIN
     Dosage: 514 MILLIGRAM
     Route: 065
     Dates: start: 20201229
  7. ATEZOLIZUMAB [Suspect]
     Active Substance: ATEZOLIZUMAB
     Indication: Non-small cell lung cancer
     Dosage: 1200 MILLIGRAM, Q3W (NEXT DOSE: 11/FEB/2021)
     Route: 042
     Dates: start: 20201229
  8. ATEZOLIZUMAB [Suspect]
     Active Substance: ATEZOLIZUMAB
     Dosage: 1200 MILLIGRAM, Q3W
     Route: 042
     Dates: start: 20210121
  9. ETOPOSIDE [Suspect]
     Active Substance: ETOPOSIDE
     Indication: Non-small cell lung cancer
     Dosage: UNK
     Route: 065
  10. ONDANSETRON [Concomitant]
     Active Substance: ONDANSETRON
     Indication: Prophylaxis
     Dosage: TID
     Route: 065
     Dates: start: 20201228, end: 20210101
  11. ONDANSETRON [Concomitant]
     Active Substance: ONDANSETRON
     Dosage: UNK
     Route: 065
     Dates: start: 20210127, end: 20210131
  12. ONDANSETRON [Concomitant]
     Active Substance: ONDANSETRON
     Dosage: UNK, TID
     Route: 065
     Dates: start: 20210325, end: 20220221
  13. GABAPENTIN [Concomitant]
     Active Substance: GABAPENTIN
     Indication: Prophylaxis
     Dosage: UNK UNK, TID
     Route: 065
     Dates: start: 20201229
  14. ACETAMINOPHEN [Concomitant]
     Active Substance: ACETAMINOPHEN
     Indication: Prophylaxis
     Dosage: UNK UNK, TID
     Route: 065
     Dates: start: 20201229
  15. MASTICAL D [Concomitant]
     Dosage: UNK UNK, QD
     Route: 065
     Dates: start: 20201229
  16. LORAZEPAM [Concomitant]
     Active Substance: LORAZEPAM
     Indication: Prophylaxis
     Dosage: UNK UNK, TID
     Route: 065
     Dates: start: 20201229
  17. LORAZEPAM [Concomitant]
     Active Substance: LORAZEPAM
     Dosage: UNK UNK, TID
     Route: 065
     Dates: start: 20201229
  18. DEXAMETHASONE [Concomitant]
     Active Substance: DEXAMETHASONE
     Indication: Prophylaxis
     Dosage: UNK, BID
     Route: 065
     Dates: start: 20201229
  19. METAMIZOL [Concomitant]
     Active Substance: METAMIZOLE SODIUM
     Indication: Prophylaxis
     Dosage: 2 GRAM, TID
     Route: 065
     Dates: start: 20201229
  20. PRISTIQ EXTENDED-RELEASE [Concomitant]
     Active Substance: DESVENLAFAXINE SUCCINATE
     Indication: Prophylaxis
     Dosage: UNK UNK, QD
     Route: 065
     Dates: start: 20201229
  21. MST-30 [Concomitant]
     Indication: Prophylaxis
     Dosage: UNK UNK, BID
     Route: 065
     Dates: start: 20201229
  22. MORPHINE [Concomitant]
     Active Substance: MORPHINE
     Indication: Prophylaxis
     Dosage: UNK, BID
     Route: 065
     Dates: start: 20201229
  23. BUSCAPINA [Concomitant]
     Dosage: UNK UNK, TID (START DATE 6-MAY-2021)
     Route: 065
  24. CIPROFLOXACIN [Concomitant]
     Active Substance: CIPROFLOXACIN
     Indication: Prophylaxis
     Dosage: UNK UNK, BID START 21-JUN-2021
     Route: 065
     Dates: end: 20210628
  25. CIPROFLOXACIN [Concomitant]
     Active Substance: CIPROFLOXACIN
     Dosage: UNK, BID, START 31-MAY-2021
     Route: 065
     Dates: end: 20210607
  26. URBASON DEPOT [Concomitant]
     Dosage: UNK, QD, START 23-SEP-2021
     Route: 065
  27. PANTOPRAZOLE [Concomitant]
     Active Substance: PANTOPRAZOLE
     Indication: Prophylaxis
     Dosage: UNK, BID, START 21-JUN-2021
     Route: 065
  28. PANTOPRAZOLE [Concomitant]
     Active Substance: PANTOPRAZOLE
     Dosage: UNK, BID
     Route: 065
  29. PANTOPRAZOLE [Concomitant]
     Active Substance: PANTOPRAZOLE
     Dosage: UNK, BID, START 30-APR-2021
     Route: 065
  30. Covid-19 vaccine [Concomitant]
     Indication: Prophylaxis
     Dosage: UNK, ??-MAY-2021
     Route: 065
     Dates: end: 202105
  31. DESVENLAFAXINE [Concomitant]
     Active Substance: DESVENLAFAXINE
     Indication: Prophylaxis
     Dosage: UNK UNK, QD
     Route: 065
     Dates: start: 20201229
  32. PREGABALIN [Concomitant]
     Active Substance: PREGABALIN
     Dosage: UNK, 15-APR-2021
     Route: 065
  33. NYSTATIN [Concomitant]
     Active Substance: NYSTATIN
     Dosage: UNK, QD, START 06-MAY-2021
     Route: 065
  34. NYSTATIN [Concomitant]
     Active Substance: NYSTATIN
     Dosage: UNK, BID
     Route: 065
     Dates: start: 20210430
  35. NYSTATIN [Concomitant]
     Active Substance: NYSTATIN
     Dosage: UNK, TID
     Route: 065
     Dates: start: 20201229
  36. INFLUENZA VIRUS VACCINE [Concomitant]
     Active Substance: INFLUENZA VIRUS VACCINE
     Indication: Prophylaxis
     Dosage: UNK
     Route: 065
     Dates: start: 202201, end: 202201
  37. ATROVENT [Concomitant]
     Active Substance: IPRATROPIUM BROMIDE
     Indication: Prophylaxis
     Dosage: UNK, QD
     Route: 065
     Dates: start: 20220221
  38. FOSAPREPITANT [Concomitant]
     Active Substance: FOSAPREPITANT
     Indication: Prophylaxis
     Dosage: UNK
     Route: 065
     Dates: start: 20210211, end: 20210211
  39. LOPERAMIDE HYDROCHLORIDE [Concomitant]
     Active Substance: LOPERAMIDE HYDROCHLORIDE
     Dosage: UNK
     Route: 065
     Dates: start: 20220503, end: 20220503
  40. MONUROL [Concomitant]
     Active Substance: FOSFOMYCIN TROMETHAMINE
     Dosage: UNK, QD
     Route: 065
     Dates: start: 20220221, end: 20220223
  41. ATEZOLIZUMAB [Concomitant]
     Active Substance: ATEZOLIZUMAB
     Dosage: UNK
     Route: 065
  42. ZOLEDRONIC ACID [Concomitant]
     Active Substance: ZOLEDRONIC ACID
     Indication: Prophylaxis
     Dosage: UNK
     Route: 065
     Dates: start: 20210121, end: 20210211
  43. ZOLEDRONIC ACID [Concomitant]
     Active Substance: ZOLEDRONIC ACID
     Dosage: UNK
     Route: 065
     Dates: start: 20210304, end: 20220131
  44. Almax [Concomitant]
     Indication: Prophylaxis
     Dosage: UNK, TID
     Route: 065
     Dates: start: 20210621, end: 20220221
  45. PIPERACILLIN SODIUM\TAZOBACTAM SODIUM [Concomitant]
     Active Substance: PIPERACILLIN SODIUM\TAZOBACTAM SODIUM
     Indication: Prophylaxis
     Dosage: UNK, QD
     Route: 065
     Dates: start: 20220413
  46. PIPERACILLIN SODIUM\TAZOBACTAM SODIUM [Concomitant]
     Active Substance: PIPERACILLIN SODIUM\TAZOBACTAM SODIUM
     Dosage: UNK, TID
     Route: 065
     Dates: start: 20210621, end: 20220221

REACTIONS (8)
  - Vomiting [Recovered/Resolved]
  - Haematuria [Recovered/Resolved]
  - Oral candidiasis [Recovered/Resolved]
  - Abdominal pain [Recovered/Resolved]
  - Nausea [Recovered/Resolved]
  - Anxiety [Recovered/Resolved]
  - Mucosal inflammation [Recovered/Resolved]
  - Back pain [Not Recovered/Not Resolved]

NARRATIVE: CASE EVENT DATE: 20210104
